FAERS Safety Report 17655353 (Version 1)
Quarter: 2020Q2

REPORT INFORMATION
  Report Type: Spontaneous
  Country: US (occurrence: US)
  Receive Date: 20200409
  Receipt Date: 20200409
  Transmission Date: 20200713
  Serious: Yes (Other)
  Sender: FDA-Public Use
  Company Number: None

PATIENT
  Age: 68 Year
  Sex: Female

DRUGS (1)
  1. BEOVU [Suspect]
     Active Substance: BROLUCIZUMAB-DBLL
     Indication: AGE-RELATED MACULAR DEGENERATION
     Route: 031
     Dates: start: 20200204, end: 20200303

REACTIONS (5)
  - Headache [None]
  - Eye pain [None]
  - Visual acuity reduced [None]
  - Vitreous floaters [None]
  - Photopsia [None]

NARRATIVE: CASE EVENT DATE: 20200402
